FAERS Safety Report 22521875 (Version 2)
Quarter: 2023Q2

REPORT INFORMATION
  Report Type: Spontaneous
  Country: IT (occurrence: IT)
  Receive Date: 20230605
  Receipt Date: 20230616
  Transmission Date: 20230721
  Serious: Yes (Other)
  Sender: FDA-Public Use
  Company Number: IT-002147023-NVSC2023IT115750

PATIENT
  Age: 70 Year
  Sex: Female
  Weight: 85 kg

DRUGS (14)
  1. PEMBROLIZUMAB [Suspect]
     Active Substance: PEMBROLIZUMAB
     Indication: Product used for unknown indication
     Dosage: UNK
     Route: 065
     Dates: start: 202107, end: 20211201
  2. CARBOPLATIN [Suspect]
     Active Substance: CARBOPLATIN
     Indication: Product used for unknown indication
     Dosage: UNK
     Route: 065
     Dates: start: 202107, end: 20211201
  3. PACLITAXEL [Suspect]
     Active Substance: PACLITAXEL
     Indication: Lung cancer metastatic
     Dosage: UNK
     Route: 065
  4. FENTANYL [Suspect]
     Active Substance: FENTANYL
     Indication: Product used for unknown indication
     Dosage: 50 UG (1 PATCH EVERY 72 HOURS)
     Route: 062
  5. PEMETREXED [Suspect]
     Active Substance: PEMETREXED
     Indication: Lung cancer metastatic
     Dosage: UNK
     Route: 065
     Dates: start: 202107, end: 20211201
  6. ZOMETA [Suspect]
     Active Substance: ZOLEDRONIC ACID
     Indication: Resorption bone decreased
     Dosage: UNK
     Route: 065
     Dates: start: 20211130
  7. ESOPRAL [ESOMEPRAZOLE] [Concomitant]
     Indication: Product used for unknown indication
     Dosage: 1 DOSAGE FORM AT (8) 1 CP BEFORE BREAKFAST)
     Route: 065
  8. PECFENT [Concomitant]
     Active Substance: FENTANYL CITRATE
     Indication: Product used for unknown indication
     Dosage: 2 DOSAGE FORM (2 SPRAYS IN THE MORNING WHEN HE GETS UP)
     Route: 065
  9. BISOPROLOL [Concomitant]
     Active Substance: BISOPROLOL
     Indication: Product used for unknown indication
     Dosage: AT (8) 1.25 MG 1 CP PER DI
     Route: 065
  10. FOLIC ACID [Concomitant]
     Active Substance: FOLIC ACID
     Indication: Product used for unknown indication
     Dosage: 5 MG, QD (DAILY)
     Route: 065
  11. ACETAMINOPHEN\OXYCODONE HYDROCHLORIDE [Concomitant]
     Active Substance: ACETAMINOPHEN\OXYCODONE HYDROCHLORIDE
     Indication: Product used for unknown indication
     Dosage: UNK UNK, TID (5 MGI CP X 3 DAILY)
     Route: 065
  12. ACETAMINOPHEN [Concomitant]
     Active Substance: ACETAMINOPHEN
     Indication: Product used for unknown indication
     Dosage: 1000 MG (IF FEVER)
     Route: 065
  13. KCL [Concomitant]
     Active Substance: POTASSIUM CHLORIDE
     Indication: Product used for unknown indication
     Dosage: UNK (RETARD 2 CP IN THE MORNING + 2 CP IN THE EVENING)
     Route: 065
  14. SENNA LAXATIVE [Concomitant]
     Active Substance: SENNOSIDES
     Indication: Product used for unknown indication
     Dosage: UNK (IN THE EVENING)
     Route: 065

REACTIONS (7)
  - Neutropenia [Unknown]
  - COVID-19 [Unknown]
  - Drug intolerance [Unknown]
  - Diarrhoea [Unknown]
  - Osteolysis [Unknown]
  - Mastoid disorder [Unknown]
  - Asthenia [Unknown]

NARRATIVE: CASE EVENT DATE: 20211118
